FAERS Safety Report 6248786-8 (Version None)
Quarter: 2009Q2

REPORT INFORMATION
  Report Type: 
  Country: None (occurrence: None)
  Receive Date: 20090625
  Receipt Date: 20090610
  Transmission Date: 20091009
  Serious: Yes (Death)
  Sender: FDA-Public Use
  Company Number: 2009AL003883

PATIENT
  Age: 54 Year
  Sex: Female
  Weight: 67.1324 kg

DRUGS (13)
  1. DIGOXIN [Suspect]
     Dosage: 0.125MG, DAILY, PO
     Route: 048
  2. LASIX [Concomitant]
  3. VASOTEC [Concomitant]
  4. COENZYME Q10 [Concomitant]
  5. SPIRONOLACTONE [Concomitant]
  6. ENALAPRIL [Concomitant]
  7. FUROSEMIDE [Concomitant]
  8. COREG [Concomitant]
  9. AMOXICILLIN [Concomitant]
  10. HYDROCO [Concomitant]
  11. QUININE [Concomitant]
  12. LEVAQUIN [Concomitant]
  13. MUCINEX [Concomitant]

REACTIONS (9)
  - BACK PAIN [None]
  - CARDIAC ARREST [None]
  - CARDIOPULMONARY FAILURE [None]
  - COMA [None]
  - CONGESTIVE CARDIOMYOPATHY [None]
  - DIARRHOEA [None]
  - LEUKOPENIA [None]
  - NAUSEA [None]
  - VOMITING [None]
